FAERS Safety Report 24968788 (Version 1)
Quarter: 2025Q1

REPORT INFORMATION
  Report Type: Report from Study
  Country: US (occurrence: US)
  Receive Date: 20250214
  Receipt Date: 20250214
  Transmission Date: 20250409
  Serious: No
  Sender: AMNEAL
  Company Number: US-AMNEAL PHARMACEUTICALS-2024-AMRX-02410

PATIENT
  Sex: Female
  Weight: 90.249 kg

DRUGS (13)
  1. CARBIDOPA\LEVODOPA [Suspect]
     Active Substance: CARBIDOPA\LEVODOPA
     Indication: Parkinson^s disease
     Dosage: 36.25-145 MG
     Route: 048
  2. VISTARIL [Concomitant]
     Active Substance: HYDROXYZINE PAMOATE
     Indication: Product used for unknown indication
     Dosage: 50 MG;1 CAPSULE AT BEDTIME AS NEEDED.ORALLY ONCE A DAY
     Route: 048
  3. ATIVAN [Concomitant]
     Active Substance: LORAZEPAM
     Indication: Product used for unknown indication
     Dosage: 0.5 MG TABLET 1 TABLET AT BEDTIME AS NEEDED ORALLY ONCE A DAY
     Route: 048
  4. WELLBUTRIN [Concomitant]
     Active Substance: BUPROPION HYDROCHLORIDE
     Indication: Product used for unknown indication
     Dosage: 150 MG TABLET EXTENDED RELEASE 24 HOUR 1 TABLET IN THE MORNING ORALLY TWICE A DAY
     Route: 048
  5. ZOLOFT [Concomitant]
     Active Substance: SERTRALINE HYDROCHLORIDE
     Indication: Product used for unknown indication
     Route: 048
  6. BUSPIRONE [Concomitant]
     Active Substance: BUSPIRONE HYDROCHLORIDE
     Indication: Product used for unknown indication
     Dosage: 7.5 MG TABLET 1 TABLET ORALLY FOUR TIMES A DAY
     Route: 048
  7. ASCORBIC ACID\CRANBERRY [Concomitant]
     Active Substance: ASCORBIC ACID\CRANBERRY
     Indication: Product used for unknown indication
     Route: 065
  8. MULTIVITAMIN [ASCORBIC ACID;BIOTIN;CALCIUM;CHOLINE BITARTRATE;CHROMIUM [Concomitant]
     Indication: Product used for unknown indication
     Dosage: 1 TABLETS, 1 /DAY
     Route: 048
  9. VITAMIN B12 [Concomitant]
     Active Substance: CYANOCOBALAMIN
     Indication: Product used for unknown indication
     Dosage: 1000 MCG TABLET EXTENDED RELEASE 1 TABLET ORALLY ONCE A DAY
     Route: 048
  10. CALCIUM CITRATE [Concomitant]
     Active Substance: CALCIUM CITRATE
     Indication: Product used for unknown indication
     Route: 048
  11. VITAMIN D NOS [Concomitant]
     Active Substance: CHOLECALCIFEROL\ERGOCALCIFEROL
     Indication: Product used for unknown indication
     Dosage: 50 MCG (2000 UT) TABLET 1 TABLET ORALLY ONCE A DAY
     Route: 048
  12. DICLOFENAC DIETHYLAMINE [Concomitant]
     Active Substance: DICLOFENAC DIETHYLAMINE
     Indication: Product used for unknown indication
     Dosage: 1 % GEL AS DIRECTED EXTERNALLY TWICE DAILY
     Route: 061
  13. ROSUVASTATIN [Concomitant]
     Active Substance: ROSUVASTATIN
     Indication: Product used for unknown indication
     Dosage: 40 MG; 1 TABLETS, 1 /DAY
     Route: 048

REACTIONS (4)
  - Fall [Unknown]
  - Gait disturbance [Unknown]
  - Hallucination [Unknown]
  - Dizziness [Unknown]
